FAERS Safety Report 14640271 (Version 2)
Quarter: 2018Q2

REPORT INFORMATION
  Report Type: Spontaneous
  Country: JP (occurrence: JP)
  Receive Date: 20180315
  Receipt Date: 20180412
  Transmission Date: 20180711
  Serious: Yes (Other)
  Sender: FDA-Public Use
  Company Number: PHJP2018JP005643

PATIENT
  Sex: Female

DRUGS (2)
  1. STALEVO [Suspect]
     Active Substance: CARBIDOPA\ENTACAPONE\LEVODOPA
     Indication: PARKINSON^S DISEASE
     Dosage: 7 DF, QD (6 TABLETS OF L100 (100/100/10 MG) AND 1 TABLET OF L50 (100/50/5 MG))
     Route: 048
     Dates: end: 20180307
  2. STALEVO [Suspect]
     Active Substance: CARBIDOPA\ENTACAPONE\LEVODOPA
     Dosage: 7 DF, QD (6 TABLETS OF L100 (100/100/10 MG) AND 1 TABLET OF L50 (100/50/5 MG))
     Route: 048

REACTIONS (1)
  - Breast cancer [Unknown]
